FAERS Safety Report 11025185 (Version 1)
Quarter: 2015Q2

REPORT INFORMATION
  Report Type: Spontaneous
  Country: US (occurrence: None)
  Receive Date: 20150413
  Receipt Date: 20150413
  Transmission Date: 20150821
  Serious: No
  Sender: FDA-Public Use
  Company Number: None

PATIENT

DRUGS (2)
  1. VITAMIN K1 [Suspect]
     Active Substance: PHYTONADIONE
     Dosage: INJECTABLE?INJECTION?1 MG/0.5 ML ?SINGLE DOSE AMPULE ?0.5 ML
  2. VITAMIN K1 [Suspect]
     Active Substance: PHYTONADIONE
     Dosage: INJECTABLE?INJECTION?10 MG/ML?SINGE DOSE AMPULE?1 ML

REACTIONS (4)
  - Device malfunction [None]
  - Product packaging issue [None]
  - Drug dispensing error [None]
  - Product packaging confusion [None]
